FAERS Safety Report 12810846 (Version 1)
Quarter: 2016Q4

REPORT INFORMATION
  Report Type: Spontaneous
  Country: US (occurrence: US)
  Receive Date: 20161005
  Receipt Date: 20161005
  Transmission Date: 20170207
  Serious: Yes (Other)
  Sender: FDA-Public Use
  Company Number: None

PATIENT
  Age: 44 Year
  Sex: Male
  Weight: 254 kg

DRUGS (15)
  1. CLINDAMYACINE [Concomitant]
  2. FLOVENT [Concomitant]
     Active Substance: FLUTICASONE PROPIONATE
  3. MORPHINE IR [Concomitant]
     Active Substance: MORPHINE
  4. FUROSEMIDE. [Concomitant]
     Active Substance: FUROSEMIDE
  5. TEMAZEPAM. [Concomitant]
     Active Substance: TEMAZEPAM
  6. ONDANSETRON [Concomitant]
     Active Substance: ONDANSETRON
  7. LOVENOX [Concomitant]
     Active Substance: ENOXAPARIN SODIUM
  8. TYLENOL [Concomitant]
     Active Substance: ACETAMINOPHEN
  9. LANTUS [Concomitant]
     Active Substance: INSULIN GLARGINE
  10. NOVOLOG [Concomitant]
     Active Substance: INSULIN ASPART
  11. MORPHINE ER [Concomitant]
     Active Substance: MORPHINE
  12. NIGHTQUOL [Concomitant]
  13. COMETRIQ [Suspect]
     Active Substance: CABOZANTINIB S-MALATE
     Indication: RENAL CANCER
     Dosage: 60 MG DAILY DOSE 20 MG CAPSULES 3 CAPSULES EQUAL 60 MG ONCE A DAY BY MOUTH
     Route: 048
     Dates: start: 20160920, end: 20160920
  14. FORTAZ [Concomitant]
     Active Substance: CEFTAZIDIME SODIUM
  15. DIPHENYDRAMINE [Concomitant]

REACTIONS (3)
  - Blood count abnormal [None]
  - Haemorrhage urinary tract [None]
  - Abdominal pain [None]

NARRATIVE: CASE EVENT DATE: 20160921
